FAERS Safety Report 15202837 (Version 1)
Quarter: 2018Q3

REPORT INFORMATION
  Report Type: Spontaneous
  Country: US (occurrence: US)
  Receive Date: 20180726
  Receipt Date: 20180726
  Transmission Date: 20181010
  Serious: Yes (Hospitalization)
  Sender: FDA-Public Use
  Company Number: US-OTSUKA-2018_017035

PATIENT
  Sex: Female

DRUGS (2)
  1. ABILIFY [Suspect]
     Active Substance: ARIPIPRAZOLE
     Indication: MAJOR DEPRESSION
     Dosage: UNK
     Route: 065
     Dates: start: 200302, end: 200905
  2. ABILIFY [Suspect]
     Active Substance: ARIPIPRAZOLE
     Indication: ANXIETY

REACTIONS (19)
  - Dermatillomania [Recovered/Resolved]
  - Compulsive hoarding [Recovered/Resolved]
  - Sexual dysfunction [Recovered/Resolved]
  - Unintended pregnancy [Unknown]
  - Loss of employment [Unknown]
  - Obsessive-compulsive disorder [Recovered/Resolved]
  - Gambling disorder [Recovered/Resolved]
  - Divorced [Unknown]
  - Mental disorder [Unknown]
  - Compulsive sexual behaviour [Recovered/Resolved]
  - Compulsive shopping [Unknown]
  - Eating disorder [Recovered/Resolved]
  - Sexually transmitted disease [Unknown]
  - Shoplifting [Recovered/Resolved]
  - Hypersexuality [Unknown]
  - Economic problem [Unknown]
  - Product use in unapproved indication [Unknown]
  - Theft [Recovered/Resolved]
  - Trichotillomania [Recovered/Resolved]
